FAERS Safety Report 22144364 (Version 1)
Quarter: 2023Q1

REPORT INFORMATION
  Report Type: Spontaneous
  Country: JP (occurrence: JP)
  Receive Date: 20230328
  Receipt Date: 20230328
  Transmission Date: 20230418
  Serious: Yes (Hospitalization)
  Sender: FDA-Public Use
  Company Number: JP-STRIDES ARCOLAB LIMITED-2023SP004389

PATIENT
  Age: 5 Decade
  Sex: Female

DRUGS (3)
  1. PREDNISOLONE [Interacting]
     Active Substance: PREDNISOLONE
     Indication: Polychondritis
     Dosage: 45 MILLIGRAM PER DAY
     Route: 065
  2. METHOTREXATE [Suspect]
     Active Substance: METHOTREXATE
     Indication: Polychondritis
     Dosage: 8 MILLIGRAM PER WEEK
     Route: 065
  3. DAPSONE [Interacting]
     Active Substance: DAPSONE
     Indication: Polychondritis
     Dosage: 100 MILLIGRAM PER DAY
     Route: 065

REACTIONS (3)
  - Methaemoglobinaemia [Recovered/Resolved]
  - Drug interaction [Unknown]
  - Off label use [Unknown]
